FAERS Safety Report 16118273 (Version 1)
Quarter: 2019Q1

REPORT INFORMATION
  Report Type: Spontaneous
  Country: BR (occurrence: BR)
  Receive Date: 20190326
  Receipt Date: 20190326
  Transmission Date: 20190418
  Serious: Yes (Death)
  Sender: FDA-Public Use
  Company Number: BR-PFIZER INC-2019128086

PATIENT
  Sex: Male

DRUGS (1)
  1. LORAX//LORAZEPAM [Suspect]
     Active Substance: LORAZEPAM
     Indication: DEPRESSION
     Dosage: 4 DF, DAILY (4 TABLETS PER DAY)

REACTIONS (1)
  - Infarction [Fatal]
